FAERS Safety Report 8153831-9 (Version None)
Quarter: 2012Q1

REPORT INFORMATION
  Report Type: 
  Country: None (occurrence: None)
  Receive Date: 20120221
  Receipt Date: 20120217
  Transmission Date: 20120608
  Serious: Yes (Hospitalization, Other)
  Sender: FDA-Public Use
  Company Number: GR-ABBOTT-11P-066-0837363-00

PATIENT
  Age: 66 Year
  Sex: Male

DRUGS (3)
  1. BISOPROLOL FUMARATE [Concomitant]
     Indication: HYPERTENSION
     Route: 048
     Dates: start: 19910101
  2. AMLODIPIN + VALSARTAN (X-FORGE) [Concomitant]
     Indication: HYPERTENSION
     Dates: start: 19910101
  3. HUMIRA [Suspect]
     Indication: PSORIATIC ARTHROPATHY
     Route: 058
     Dates: start: 20080101, end: 20110601

REACTIONS (7)
  - TONSILLAR HYPERTROPHY [None]
  - HYPOPHARYNGEAL NEOPLASM [None]
  - SARCOIDOSIS [None]
  - OROPHARYNGEAL PAIN [None]
  - DYSPHAGIA [None]
  - TONGUE ULCERATION [None]
  - DYSPHONIA [None]
